FAERS Safety Report 20715694 (Version 1)
Quarter: 2022Q2

REPORT INFORMATION
  Report Type: Spontaneous
  Country: IT (occurrence: IT)
  Receive Date: 20220415
  Receipt Date: 20220415
  Transmission Date: 20220720
  Serious: No
  Sender: FDA-Public Use
  Company Number: None

PATIENT
  Age: 54 Year
  Sex: Male
  Weight: 90 kg

DRUGS (2)
  1. PAXLOVID [Suspect]
     Active Substance: NIRMATRELVIR\RITONAVIR
     Indication: COVID-19
     Dosage: 4 DF, 1X/DAY
     Route: 048
     Dates: start: 20220324, end: 20220325
  2. ROZLYTREK [Concomitant]
     Active Substance: ENTRECTINIB
     Indication: Lung adenocarcinoma
     Dosage: 3 DF
     Route: 048

REACTIONS (4)
  - Diarrhoea [Unknown]
  - Abdominal pain [Unknown]
  - Vomiting [Unknown]
  - Incorrect dose administered [Unknown]

NARRATIVE: CASE EVENT DATE: 20220324
